FAERS Safety Report 26126003 (Version 1)
Quarter: 2025Q4

REPORT INFORMATION
  Report Type: Spontaneous
  Country: US (occurrence: US)
  Receive Date: 20251205
  Receipt Date: 20251205
  Transmission Date: 20260118
  Serious: No
  Sender: BAYER HEALTHCARE PHARMACEUTICALS INC.
  Company Number: US-BAYER-2025A160424

PATIENT
  Age: 30 Year
  Sex: Male

DRUGS (6)
  1. MOXIFLOXACIN HYDROCHLORIDE [Suspect]
     Active Substance: MOXIFLOXACIN HYDROCHLORIDE
     Indication: Lepromatous leprosy
     Dosage: 400 MG, QD
  2. RIFAMPIN [Concomitant]
     Active Substance: RIFAMPIN
     Indication: Lepromatous leprosy
     Dosage: 600 MG, QD
  3. MINOCYCLINE [Concomitant]
     Active Substance: MINOCYCLINE HYDROCHLORIDE
     Indication: Lepromatous leprosy
     Dosage: 100 MG
  4. METHOTREXATE [Concomitant]
     Active Substance: METHOTREXATE
     Indication: Lepromatous leprosy
     Dosage: 7.5 MG, OW
     Route: 048
  5. PREDNISOLONE ACETATE [Concomitant]
     Active Substance: PREDNISOLONE ACETATE
     Indication: Lepromatous leprosy
     Dosage: 1% FOUR TIMES DAILY
     Route: 047
  6. METHYLPREDNISOLONE [Concomitant]
     Active Substance: METHYLPREDNISOLONE
     Indication: Lepromatous leprosy
     Dosage: 125 MG, BID
     Route: 042

REACTIONS (2)
  - Product use in unapproved indication [None]
  - Product prescribing issue [None]
